FAERS Safety Report 21768553 (Version 1)
Quarter: 2022Q4

REPORT INFORMATION
  Report Type: Spontaneous
  Country: CA (occurrence: CA)
  Receive Date: 20221222
  Receipt Date: 20221222
  Transmission Date: 20230113
  Serious: Yes (Death, Other)
  Sender: FDA-Public Use
  Company Number: CA-AstraZeneca-2022A408346

PATIENT

DRUGS (1)
  1. TRASTUZUMAB DERUXTECAN [Suspect]
     Active Substance: TRASTUZUMAB DERUXTECAN
     Indication: Breast cancer
     Dosage: UNK
     Route: 042

REACTIONS (4)
  - Death [Fatal]
  - Metastases to central nervous system [Fatal]
  - Malignant neoplasm progression [Fatal]
  - Drug ineffective [Fatal]
